FAERS Safety Report 14413227 (Version 1)
Quarter: 2018Q1

REPORT INFORMATION
  Report Type: Spontaneous
  Country: US (occurrence: US)
  Receive Date: 20180119
  Receipt Date: 20180119
  Transmission Date: 20180509
  Serious: Yes (Other)
  Sender: FDA-Public Use
  Company Number: US-PURDUE-USA-2018-0142450

PATIENT
  Sex: Female

DRUGS (4)
  1. HYDROCODONE BITARTRATE (SIMILAR TO NDA 206627) [Suspect]
     Active Substance: HYDROCODONE BITARTRATE
     Indication: INTERVERTEBRAL DISC PROTRUSION
     Dosage: UNK
     Route: 048
  2. TRAMADOL. [Suspect]
     Active Substance: TRAMADOL
     Indication: PAIN
     Dosage: UNK
     Route: 065
  3. TRAMADOL. [Suspect]
     Active Substance: TRAMADOL
     Dosage: UNK
     Route: 065
  4. ALCOHOL. [Suspect]
     Active Substance: ALCOHOL
     Indication: PRODUCT USED FOR UNKNOWN INDICATION
     Dosage: UNK
     Route: 065

REACTIONS (16)
  - Energy increased [Unknown]
  - Euphoric mood [Unknown]
  - Drug tolerance [Recovered/Resolved]
  - Anxiety [Unknown]
  - Suicidal ideation [Unknown]
  - Influenza like illness [Unknown]
  - Drug abuse [Recovering/Resolving]
  - Intervertebral disc degeneration [Unknown]
  - Drug dependence [Recovering/Resolving]
  - Tachyphrenia [Unknown]
  - Emotional poverty [Unknown]
  - Pain [Unknown]
  - Hyperhidrosis [Unknown]
  - Depressed mood [Unknown]
  - Unevaluable event [Unknown]
  - Inadequate analgesia [Recovered/Resolved]

NARRATIVE: CASE EVENT DATE: 2010
